FAERS Safety Report 4864049-7 (Version None)
Quarter: 2005Q4

REPORT INFORMATION
  Report Type: 
  Country: None (occurrence: None)
  Receive Date: 20051219
  Receipt Date: 20051219
  Transmission Date: 20060501
  Serious: Yes (Hospitalization)
  Sender: FDA-Public Use
  Company Number: None

PATIENT
  Age: 73 Year
  Sex: Female
  Weight: 67.5 kg

DRUGS (7)
  1. CISPLATIN [Suspect]
     Indication: OESOPHAGEAL CARCINOMA
     Dosage: 75MG/M2 Q 3 WK IV
     Route: 042
     Dates: start: 20051128
  2. DOCETAXEL [Suspect]
     Dosage: 75MG/M2 Q 3 WK IV
     Route: 042
     Dates: start: 20051128
  3. VICODIN [Concomitant]
  4. PROTONIX [Concomitant]
  5. PROZAC [Concomitant]
  6. ATIVAN [Concomitant]
  7. DECADRON [Concomitant]

REACTIONS (3)
  - BALANCE DISORDER [None]
  - FALL [None]
  - HIP FRACTURE [None]
